FAERS Safety Report 9381266 (Version 1)
Quarter: 2013Q3

REPORT INFORMATION
  Report Type: Report from Study
  Country: CN (occurrence: CN)
  Receive Date: 20130703
  Receipt Date: 20130703
  Transmission Date: 20140515
  Serious: Yes (Death, Other)
  Sender: FDA-Public Use
  Company Number: CN-ROCHE-1242675

PATIENT
  Sex: 0

DRUGS (9)
  1. MYCOPHENOLATE MOFETIL [Suspect]
     Indication: IMMUNOSUPPRESSION
     Route: 048
  2. CYCLOSPORINE A [Concomitant]
     Indication: IMMUNOSUPPRESSION
     Dosage: 2.5 MG/KG PER DAY
     Route: 041
  3. CYCLOSPORINE A [Concomitant]
     Route: 048
  4. METHOTREXATE [Concomitant]
     Indication: IMMUNOSUPPRESSION
     Route: 041
  5. CYTARABINE [Concomitant]
     Indication: TRANSPLANT
     Route: 041
  6. FLUDARABINE [Concomitant]
     Indication: TRANSPLANT
     Route: 041
  7. SULFAMETHOXAZOLE [Concomitant]
     Indication: PROPHYLAXIS AGAINST TRANSPLANT REJECTION
     Route: 048
  8. FLUCONAZOLE [Concomitant]
     Indication: PROPHYLAXIS AGAINST TRANSPLANT REJECTION
     Route: 048
  9. GANCICLOVIR [Concomitant]
     Indication: ANTIVIRAL PROPHYLAXIS
     Route: 065

REACTIONS (4)
  - Lung infection [Fatal]
  - Sepsis [Unknown]
  - Anal infection [Recovering/Resolving]
  - Cystitis haemorrhagic [Unknown]
